FAERS Safety Report 10435912 (Version 1)
Quarter: 2014Q3

REPORT INFORMATION
  Report Type: Spontaneous
  Country: US (occurrence: US)
  Receive Date: 20140908
  Receipt Date: 20140908
  Transmission Date: 20150326
  Serious: No
  Sender: FDA-Public Use
  Company Number: US-GLAXOSMITHKLINE-A1076295A

PATIENT
  Age: 72 Year
  Sex: Male

DRUGS (5)
  1. BREO ELLIPTA [Suspect]
     Active Substance: FLUTICASONE FUROATE\VILANTEROL TRIFENATATE
     Indication: CHRONIC OBSTRUCTIVE PULMONARY DISEASE
     Dosage: 1PUFF PER DAY
     Route: 055
     Dates: start: 20140606
  2. OXYGEN. [Concomitant]
     Active Substance: OXYGEN
  3. PREDNISONE. [Concomitant]
     Active Substance: PREDNISONE
  4. AVAPRO [Concomitant]
     Active Substance: IRBESARTAN
  5. ALLERTEC [Concomitant]

REACTIONS (3)
  - Nasal dryness [Unknown]
  - Hyperaesthesia [Not Recovered/Not Resolved]
  - Abdominal pain [Unknown]

NARRATIVE: CASE EVENT DATE: 20140606
